FAERS Safety Report 18904555 (Version 2)
Quarter: 2021Q1

REPORT INFORMATION
  Report Type: Spontaneous
  Country: PT (occurrence: PT)
  Receive Date: 20210217
  Receipt Date: 20210227
  Transmission Date: 20210420
  Serious: Yes (Death, Life-Threatening, Hospitalization, Other)
  Sender: FDA-Public Use
  Company Number: PT-STRIDES ARCOLAB LIMITED-2021SP002086

PATIENT
  Age: 73 Year
  Sex: Female

DRUGS (8)
  1. TACROLIMUS. [Suspect]
     Active Substance: TACROLIMUS
     Dosage: UNK, TROUGH LEVELS 4?7 NG/ML
     Route: 065
     Dates: start: 2010, end: 2019
  2. MYCOPHENOLATE MOFETIL. [Suspect]
     Active Substance: MYCOPHENOLATE MOFETIL
     Indication: RENAL TRANSPLANT
     Dosage: UNK
     Route: 065
  3. PREDNISOLONE. [Suspect]
     Active Substance: PREDNISOLONE
     Indication: RENAL TRANSPLANT
     Dosage: UNK
     Route: 065
  4. PREDNISOLONE. [Suspect]
     Active Substance: PREDNISOLONE
     Dosage: 5 MILLIGRAM (MAINTENANCE IMMUNOSUPRESSION)
     Route: 065
     Dates: start: 2010
  5. MYCOPHENOLATE MOFETIL. [Suspect]
     Active Substance: MYCOPHENOLATE MOFETIL
     Dosage: 500 MILLIGRAM PER DAY
     Route: 065
     Dates: start: 2010, end: 2019
  6. THYMOGLOBULIN [Suspect]
     Active Substance: LAPINE T-LYMPHOCYTE IMMUNE GLOBULIN
     Indication: RENAL TRANSPLANT
     Dosage: UNK (MAINTENANCE IMMUNOSUPRESSION)
     Route: 065
     Dates: start: 2010
  7. TACROLIMUS. [Suspect]
     Active Substance: TACROLIMUS
     Indication: RENAL TRANSPLANT
     Dosage: UNK
     Route: 065
  8. TACROLIMUS. [Suspect]
     Active Substance: TACROLIMUS
     Dosage: UNK, TROUGH LEVELS 2?4 NG/ML
     Route: 065
     Dates: start: 2019

REACTIONS (10)
  - Myelosuppression [Unknown]
  - Mucocutaneous leishmaniasis [Fatal]
  - Pseudomonal bacteraemia [Unknown]
  - Epstein-Barr virus infection [Unknown]
  - Pancytopenia [Not Recovered/Not Resolved]
  - Herpes virus infection [Unknown]
  - Cachexia [Fatal]
  - Visceral leishmaniasis [Fatal]
  - Cutaneous leishmaniasis [Fatal]
  - Serratia bacteraemia [Unknown]

NARRATIVE: CASE EVENT DATE: 2017
